FAERS Safety Report 10553757 (Version 1)
Quarter: 2014Q4

REPORT INFORMATION
  Report Type: Report from Study
  Country: US (occurrence: US)
  Receive Date: 20141030
  Receipt Date: 20141030
  Transmission Date: 20150529
  Serious: No
  Sender: FDA-Public Use
  Company Number: US-AMGEN-USASL2014082833

PATIENT
  Age: 42 Year
  Sex: Female

DRUGS (1)
  1. ENBREL [Suspect]
     Active Substance: ETANERCEPT
     Indication: RHEUMATOID ARTHRITIS
     Dosage: 50 MG, QWK
     Route: 065
     Dates: start: 2014

REACTIONS (5)
  - Lymph node pain [Recovered/Resolved]
  - Skin mass [Not Recovered/Not Resolved]
  - Dysphonia [Not Recovered/Not Resolved]
  - Heart rate increased [Not Recovered/Not Resolved]
  - Lymphadenopathy [Recovered/Resolved]

NARRATIVE: CASE EVENT DATE: 2014
